FAERS Safety Report 19219708 (Version 2)
Quarter: 2022Q2

REPORT INFORMATION
  Report Type: Spontaneous
  Country: US (occurrence: US)
  Receive Date: 20210506
  Receipt Date: 20220502
  Transmission Date: 20220721
  Serious: Yes (Life-Threatening, Hospitalization, Other)
  Sender: FDA-Public Use
  Company Number: US-SUN PHARMACEUTICAL INDUSTRIES LTD-2021R1-294489

PATIENT
  Age: 58 Year
  Sex: Female

DRUGS (1)
  1. BACLOFEN [Suspect]
     Active Substance: BACLOFEN
     Indication: Product used for unknown indication
     Dosage: 30 MILLIGRAM, DAILY
     Route: 048

REACTIONS (12)
  - Withdrawal syndrome [Recovering/Resolving]
  - Tremor [Recovered/Resolved]
  - Paraesthesia [Recovering/Resolving]
  - Muscular weakness [Recovering/Resolving]
  - Hyperpyrexia [Recovered/Resolved]
  - Tachycardia [Recovering/Resolving]
  - Hypertension [Recovering/Resolving]
  - Tachypnoea [Recovering/Resolving]
  - Hallucination, visual [Recovering/Resolving]
  - Clonus [Recovering/Resolving]
  - Muscle rigidity [Recovering/Resolving]
  - Somnolence [Recovering/Resolving]
